FAERS Safety Report 13815836 (Version 2)
Quarter: 2017Q3

REPORT INFORMATION
  Report Type: Spontaneous
  Country: GB (occurrence: GB)
  Receive Date: 20170731
  Receipt Date: 20170810
  Transmission Date: 20171127
  Serious: Yes (Hospitalization)
  Sender: FDA-Public Use
  Company Number: GB-SAMSUNG BIOEPIS-SB-2017-06836

PATIENT
  Age: 6 Week
  Sex: Female

DRUGS (1)
  1. INFLIXIMAB [Suspect]
     Active Substance: INFLIXIMAB
     Indication: KAWASAKI^S DISEASE
     Dosage: UNKNOWN
     Route: 065

REACTIONS (3)
  - Off label use [Unknown]
  - Condition aggravated [Unknown]
  - Coronary artery dilatation [Unknown]
